FAERS Safety Report 7210067-3 (Version None)
Quarter: 2011Q1

REPORT INFORMATION
  Report Type: 
  Country: None (occurrence: None)
  Receive Date: 20110105
  Receipt Date: 20101227
  Transmission Date: 20110831
  Serious: Yes (Other)
  Sender: FDA-Public Use
  Company Number: DE-AMGEN-DEUSP2011000020

PATIENT

DRUGS (2)
  1. ENBREL FERTIGSPRITZE [Suspect]
     Indication: PSORIATIC ARTHROPATHY
     Dosage: 50 MG, WEEKLY
     Dates: start: 20100424, end: 20100701
  2. ENBREL FERTIGSPRITZE [Suspect]
     Dosage: 50 MG, WEEKLY
     Dates: start: 20100101

REACTIONS (5)
  - ARTHROPATHY [None]
  - MUSCLE DISORDER [None]
  - TENDON DISORDER [None]
  - DEPRESSION [None]
  - LISTLESS [None]
